FAERS Safety Report 8603196 (Version 2)
Quarter: 2014Q3

REPORT INFORMATION
  Report Type: Spontaneous
  Country: US (occurrence: US)
  Receive Date: 20120607
  Receipt Date: 20140709
  Transmission Date: 20150326
  Serious: Yes (Hospitalization)
  Sender: FDA-Public Use
  Company Number: US-GLAXOSMITHKLINE-A0906336A

PATIENT
  Sex: Female

DRUGS (5)
  1. ROSIGLITAZONE MALEATE. [Suspect]
     Active Substance: ROSIGLITAZONE MALEATE
     Indication: DIABETES MELLITUS
     Dosage: 4MG PER DAY
     Route: 048
     Dates: start: 20080607, end: 20081016
  2. METFORMIN [Concomitant]
     Active Substance: METFORMIN HYDROCHLORIDE
  3. AVANDIA [Suspect]
     Active Substance: ROSIGLITAZONE MALEATE
     Indication: DIABETES MELLITUS
     Dosage: 4MG PER DAY
     Route: 048
     Dates: start: 2003, end: 20100120
  4. FOSAMAX [Concomitant]
     Active Substance: ALENDRONATE SODIUM
  5. LANTUS [Concomitant]
     Active Substance: INSULIN GLARGINE

REACTIONS (7)
  - Myocardial infarction [Not Recovered/Not Resolved]
  - Stress cardiomyopathy [Unknown]
  - Hypertension [Unknown]
  - Dizziness [Unknown]
  - Memory impairment [Unknown]
  - Angina pectoris [Unknown]
  - Hyperlipidaemia [Unknown]
